FAERS Safety Report 8204716-0 (Version None)
Quarter: 2012Q1

REPORT INFORMATION
  Report Type: 
  Country: None (occurrence: None)
  Receive Date: 20120313
  Receipt Date: 20120302
  Transmission Date: 20120608
  Serious: Yes (Hospitalization)
  Sender: FDA-Public Use
  Company Number: JP-SANOFI-AVENTIS-2011SA067698

PATIENT
  Age: 78 Year
  Sex: Female

DRUGS (10)
  1. KYTRIL [Concomitant]
     Route: 042
     Dates: start: 20081128, end: 20081128
  2. CYCLOPHOSPHAMIDE [Suspect]
     Indication: BREAST CANCER
     Route: 065
     Dates: start: 20081128
  3. RAMELTEON [Concomitant]
     Route: 048
  4. DEXAMETHASONE [Concomitant]
     Route: 042
  5. DEXAMETHASONE [Concomitant]
     Route: 042
     Dates: start: 20081128, end: 20081128
  6. CYCLOPHOSPHAMIDE [Suspect]
     Dosage: DECREASED FROM COURSE 2 OF THE THERAPY.
     Route: 065
  7. TAXOTERE [Suspect]
     Dosage: DOSE REDUCED TO 60 MG/BODY, FROM COURSE 2 OF THE THERAPY.
     Route: 042
  8. DEXAMETHASONE [Concomitant]
     Route: 048
  9. TAXOTERE [Suspect]
     Indication: BREAST CANCER
     Dosage: 80 MG/BODY DOSE.
     Route: 042
     Dates: start: 20081128
  10. KYTRIL [Concomitant]
     Route: 042

REACTIONS (3)
  - NEUTROPHIL COUNT DECREASED [None]
  - C-REACTIVE PROTEIN INCREASED [None]
  - WHITE BLOOD CELL COUNT DECREASED [None]
